FAERS Safety Report 5179094-4 (Version None)
Quarter: 2006Q4

REPORT INFORMATION
  Report Type: 
  Country: None (occurrence: None)
  Receive Date: 20061219
  Receipt Date: 20061206
  Transmission Date: 20070319
  Serious: Yes (Other)
  Sender: FDA-Public Use
  Company Number: PHBS2006JP19005

PATIENT
  Age: 11 Year
  Sex: Female

DRUGS (3)
  1. CYCLOSPORINE [Suspect]
     Indication: FOCAL GLOMERULOSCLEROSIS
     Dosage: 3 MG/KG/D
  2. METHYLPREDNISOLONE [Concomitant]
  3. PREDNISOLONE [Suspect]
     Route: 048

REACTIONS (3)
  - NEPHROPATHY TOXIC [None]
  - OSTEOPOROSIS [None]
  - PROTEINURIA [None]
